FAERS Safety Report 15122084 (Version 1)
Quarter: 2018Q3

REPORT INFORMATION
  Report Type: Spontaneous
  Country: FR (occurrence: FR)
  Receive Date: 20180709
  Receipt Date: 20180709
  Transmission Date: 20181010
  Serious: Yes (Hospitalization, Other)
  Sender: FDA-Public Use
  Company Number: FR-SA-2018SA172043

PATIENT
  Age: 75 Year
  Sex: Female
  Weight: 135 kg

DRUGS (9)
  1. INEXIUM [ESOMEPRAZOLE MAGNESIUM] [Concomitant]
     Dosage: 2X 40
     Route: 048
     Dates: start: 2010
  2. LANTUS [Suspect]
     Active Substance: INSULIN GLARGINE
     Dosage: UNK
     Route: 058
     Dates: start: 201801
  3. ATARAX [HYDROXYZINE] [Concomitant]
     Dosage: 2X 25
     Route: 048
     Dates: start: 2010
  4. AFINITOR [Suspect]
     Active Substance: EVEROLIMUS
     Indication: PRODUCT USED FOR UNKNOWN INDICATION
     Dosage: UNK
     Dates: start: 20170822
  5. LOVENOX [Concomitant]
     Active Substance: ENOXAPARIN SODIUM
     Dosage: 0.6 UNK, UNK
     Route: 058
     Dates: start: 201801
  6. CYMBALTA [Concomitant]
     Active Substance: DULOXETINE HYDROCHLORIDE
     Dosage: 60 UNK, UNK
     Route: 048
     Dates: start: 2010
  7. LAMALINE [CAFFEINE;PAPAVER SOMNIFERUM LATEX;PARACETAMOL] [Concomitant]
     Dosage: UNK
     Route: 054
     Dates: start: 20180418
  8. LERCAN [Concomitant]
     Active Substance: LERCANIDIPINE
     Dosage: 20 UNK, UNK
     Route: 048
     Dates: start: 2010
  9. AROMASINE [Interacting]
     Active Substance: EXEMESTANE
     Dosage: 1 DF, DAILY
     Route: 048
     Dates: start: 20171115, end: 20180515

REACTIONS (4)
  - Radiation fibrosis [Not Recovered/Not Resolved]
  - Interstitial lung disease [Unknown]
  - Drug interaction [Unknown]
  - Diabetes mellitus inadequate control [Unknown]

NARRATIVE: CASE EVENT DATE: 20180315
